FAERS Safety Report 10050801 (Version 3)
Quarter: 2016Q1

REPORT INFORMATION
  Report Type: Spontaneous
  Country: US (occurrence: US)
  Receive Date: 20140401
  Receipt Date: 20160111
  Transmission Date: 20160525
  Serious: No
  Sender: FDA-Public Use
  Company Number: US-ASTRAZENECA-2014SE00764

PATIENT
  Age: 65 Year
  Sex: Female
  Weight: 55.3 kg

DRUGS (11)
  1. NEXIUM 24HR [Suspect]
     Active Substance: ESOMEPRAZOLE MAGNESIUM
     Indication: GASTROOESOPHAGEAL REFLUX DISEASE
     Route: 048
     Dates: start: 201510
  2. PRILOSEC [Suspect]
     Active Substance: OMEPRAZOLE MAGNESIUM
     Indication: GASTROOESOPHAGEAL REFLUX DISEASE
     Dosage: GENERIC, 40 MG DAILY, MYLAN PHARMACEUTICALS
     Route: 048
     Dates: start: 201312
  3. PRILOSEC [Suspect]
     Active Substance: OMEPRAZOLE MAGNESIUM
     Indication: GASTROOESOPHAGEAL REFLUX DISEASE
     Route: 048
     Dates: start: 2014
  4. NEXIUM [Suspect]
     Active Substance: ESOMEPRAZOLE MAGNESIUM
     Indication: GASTROOESOPHAGEAL REFLUX DISEASE
     Route: 048
  5. PREVACID [Concomitant]
     Active Substance: LANSOPRAZOLE
  6. METHOTREXATE [Concomitant]
     Active Substance: METHOTREXATE
     Indication: PSORIASIS
     Dosage: 225MG
     Route: 048
     Dates: start: 1987
  7. METHOTREXATE [Concomitant]
     Active Substance: METHOTREXATE
     Indication: ARTHRITIS
     Dosage: 225MG
     Route: 048
     Dates: start: 1987
  8. ESTROGEN [Concomitant]
     Active Substance: ESTRONE\SUS SCROFA OVARY
     Indication: HYSTERECTOMY
     Dosage: 0.75 BIWK
     Route: 048
     Dates: start: 1989
  9. COZAR [Concomitant]
     Indication: HYPERTENSION
     Route: 048
     Dates: start: 2006
  10. INSPIRA [Concomitant]
     Indication: HYPERTENSION
     Route: 048
  11. PROTON PUMP INHIBITORS [Concomitant]
     Active Substance: UNSPECIFIED INGREDIENT
     Indication: GASTROOESOPHAGEAL REFLUX DISEASE

REACTIONS (6)
  - Eructation [Not Recovered/Not Resolved]
  - Flatulence [Not Recovered/Not Resolved]
  - Intentional product misuse [Not Recovered/Not Resolved]
  - Drug ineffective [Unknown]
  - Product quality issue [Unknown]
  - Dysphagia [Not Recovered/Not Resolved]

NARRATIVE: CASE EVENT DATE: 201312
